FAERS Safety Report 9458800 (Version 1)
Quarter: 2013Q3

REPORT INFORMATION
  Report Type: Spontaneous
  Country: US (occurrence: US)
  Receive Date: 20130814
  Receipt Date: 20130814
  Transmission Date: 20140515
  Serious: No
  Sender: FDA-Public Use
  Company Number: US-BAYER-2013-098451

PATIENT
  Age: 20 Year
  Sex: Female

DRUGS (1)
  1. GIANVI [Suspect]
     Indication: CONTRACEPTION
     Dosage: UNK
     Dates: start: 2013, end: 2013

REACTIONS (3)
  - Depression [None]
  - Crying [None]
  - Weight increased [None]
